FAERS Safety Report 5868331-6 (Version None)
Quarter: 2008Q3

REPORT INFORMATION
  Report Type: 
  Country: None (occurrence: None)
  Receive Date: 20080903
  Receipt Date: 20080821
  Transmission Date: 20090109
  Serious: Yes (Hospitalization, Other)
  Sender: FDA-Public Use
  Company Number: FR-CELGENEUS-056-21880-08081106

PATIENT
  Sex: Male

DRUGS (6)
  1. REVLIMID [Suspect]
     Indication: AMYLOIDOSIS
     Route: 048
     Dates: start: 20080613, end: 20080704
  2. REVLIMID [Suspect]
     Route: 048
     Dates: start: 20080711, end: 20080730
  3. ALKERAN [Suspect]
     Indication: AMYLOIDOSIS
     Route: 048
     Dates: start: 20080613, end: 20080617
  4. ALKERAN [Suspect]
     Route: 048
     Dates: start: 20080711, end: 20080714
  5. DEXAMETHASONE TAB [Suspect]
     Indication: AMYLOIDOSIS
     Route: 065
     Dates: start: 20080613, end: 20080617
  6. DEXAMETHASONE TAB [Suspect]
     Route: 065
     Dates: start: 20080711, end: 20080714

REACTIONS (5)
  - ANAL FISSURE [None]
  - BUNDLE BRANCH BLOCK RIGHT [None]
  - NEUTROPENIA [None]
  - RECTAL HAEMORRHAGE [None]
  - URINARY RETENTION [None]
